FAERS Safety Report 7344604-5 (Version None)
Quarter: 2011Q1

REPORT INFORMATION
  Report Type: 
  Country: None (occurrence: None)
  Receive Date: 20110310
  Receipt Date: 20110302
  Transmission Date: 20110831
  Serious: Yes (Other)
  Sender: FDA-Public Use
  Company Number: IE-US-EMD SERONO, INC.-7043563

PATIENT
  Sex: Male
  Weight: 26 kg

DRUGS (2)
  1. SAIZEN [Suspect]
     Route: 058
     Dates: end: 20110220
  2. SAIZEN [Suspect]
     Indication: GROWTH HORMONE DEFICIENCY
     Route: 058
     Dates: start: 20090604

REACTIONS (1)
  - PRIMITIVE NEUROECTODERMAL TUMOUR [None]
